FAERS Safety Report 6963383-4 (Version None)
Quarter: 2010Q3

REPORT INFORMATION
  Report Type: 
  Country: None (occurrence: None)
  Receive Date: 20100902
  Receipt Date: 20100830
  Transmission Date: 20110219
  Serious: Yes (Other)
  Sender: FDA-Public Use
  Company Number: A0878403A

PATIENT
  Age: 17 Year
  Sex: Male

DRUGS (2)
  1. AUGMENTIN '125' [Suspect]
     Indication: SINUSITIS
     Dosage: 875MG PER DAY
     Route: 048
     Dates: start: 20100821, end: 20100824
  2. NO CONCURRENT MEDICATION [Concomitant]

REACTIONS (1)
  - OESOPHAGITIS [None]
